FAERS Safety Report 7680996-5 (Version None)
Quarter: 2011Q3

REPORT INFORMATION
  Report Type: 
  Country: None (occurrence: None)
  Receive Date: 20110812
  Receipt Date: 20110804
  Transmission Date: 20111222
  Serious: Yes (Hospitalization)
  Sender: FDA-Public Use
  Company Number: JP-JNJFOC-20100608450

PATIENT
  Sex: Female
  Weight: 65 kg

DRUGS (20)
  1. DECADRON [Concomitant]
     Route: 048
     Dates: start: 20100520, end: 20100524
  2. AZUNOL [Concomitant]
     Indication: STOMATITIS
     Route: 048
     Dates: start: 20100507, end: 20100603
  3. FOIPAN [Concomitant]
     Indication: STOMATITIS
     Route: 002
     Dates: start: 20100507
  4. DECADRON [Concomitant]
     Indication: PROPHYLAXIS
     Route: 042
     Dates: start: 20100420, end: 20100420
  5. DECADRON [Concomitant]
     Route: 042
     Dates: start: 20100520, end: 20100520
  6. LOXONIN [Concomitant]
     Indication: INTERSTITIAL LUNG DISEASE
     Dosage: AS NEEDED.
     Route: 048
     Dates: start: 20100420
  7. LOPERAMIDE HCL [Concomitant]
     Indication: PROPHYLAXIS
     Route: 048
     Dates: start: 20100421
  8. ASCORBIC ACID [Concomitant]
     Route: 065
  9. BROTIZOLAM [Concomitant]
     Route: 065
  10. DOXIL [Suspect]
     Indication: OVARIAN CANCER RECURRENT
     Route: 042
     Dates: start: 20100420, end: 20100420
  11. SEROTONE [Concomitant]
     Route: 042
     Dates: start: 20100520, end: 20100520
  12. MUCOSTA [Concomitant]
     Indication: PROPHYLAXIS
     Route: 048
     Dates: start: 20100420, end: 20100619
  13. KERATINAMIN [Concomitant]
     Indication: PIGMENTATION DISORDER
     Route: 061
     Dates: start: 20100526
  14. CINAL [Concomitant]
     Indication: PIGMENTATION DISORDER
     Route: 048
     Dates: start: 20100526
  15. SEROTONE [Concomitant]
     Indication: PROPHYLAXIS
     Route: 042
     Dates: start: 20100420, end: 20100420
  16. DECADRON [Concomitant]
     Route: 048
     Dates: start: 20100525, end: 20100526
  17. DECADRON [Concomitant]
     Route: 048
     Dates: start: 20100425, end: 20100426
  18. DOXIL [Suspect]
     Route: 042
     Dates: start: 20100520, end: 20100520
  19. DECADRON [Concomitant]
     Route: 048
     Dates: start: 20100420, end: 20100424
  20. PYDOXAL [Concomitant]
     Indication: STOMATITIS
     Route: 048
     Dates: start: 20100507, end: 20100619

REACTIONS (1)
  - INTERSTITIAL LUNG DISEASE [None]
